FAERS Safety Report 22524418 (Version 1)
Quarter: 2023Q2

REPORT INFORMATION
  Report Type: Spontaneous
  Country: US (occurrence: US)
  Receive Date: 20230606
  Receipt Date: 20230606
  Transmission Date: 20230722
  Serious: Yes (Other)
  Sender: FDA-Public Use
  Company Number: US-MLMSERVICE-20230522-4298789-1

PATIENT

DRUGS (1)
  1. ESTRADIOL [Suspect]
     Active Substance: ESTRADIOL
     Indication: Transgender hormonal therapy
     Dosage: 2 MILLIGRAM, QD
     Route: 065

REACTIONS (3)
  - Hepatic cirrhosis [Recovered/Resolved]
  - Portal hypertension [Unknown]
  - Product use issue [Unknown]
